FAERS Safety Report 17924368 (Version 1)
Quarter: 2020Q2

REPORT INFORMATION
  Report Type: Other
  Country: US (occurrence: US)
  Receive Date: 20200622
  Receipt Date: 20200622
  Transmission Date: 20200714
  Serious: No
  Sender: FDA-Public Use
  Company Number: US-ACORDA-ACO_164682_2020

PATIENT
  Age: 65 Year
  Sex: Male

DRUGS (3)
  1. CARBIDOPA LEVODOPA [Concomitant]
     Active Substance: CARBIDOPA\LEVODOPA
     Indication: PRODUCT USED FOR UNKNOWN INDICATION
     Dosage: 25/100MG: 2 PILLS 4/DAY
     Route: 065
  2. INBRIJA [Suspect]
     Active Substance: LEVODOPA
     Indication: ON AND OFF PHENOMENON
     Dosage: 84 MILLIGRAM, AS NEEDED
     Dates: start: 20200413
  3. INBRIJA [Suspect]
     Active Substance: LEVODOPA
     Indication: PARKINSON^S DISEASE

REACTIONS (2)
  - Oropharyngeal pain [Unknown]
  - Cough [Unknown]

NARRATIVE: CASE EVENT DATE: 20200413
